FAERS Safety Report 5845288-5 (Version None)
Quarter: 2008Q3

REPORT INFORMATION
  Report Type: 
  Country: None (occurrence: None)
  Receive Date: 20080814
  Receipt Date: 20080806
  Transmission Date: 20090109
  Serious: Yes (Other)
  Sender: FDA-Public Use
  Company Number: US-WATSON-2008-04750

PATIENT
  Sex: Female
  Weight: 43.084 kg

DRUGS (2)
  1. METHYLPHENIDATE HYDROCHLORIDE [Suspect]
     Indication: ATTENTION DEFICIT/HYPERACTIVITY DISORDER
     Dosage: 20 MG, QID
     Route: 048
     Dates: start: 19960101
  2. CLONIDINE [Suspect]
     Indication: INITIAL INSOMNIA
     Dosage: 0.1 MG, BID
     Route: 048
     Dates: start: 20060101

REACTIONS (6)
  - DYSKINESIA [None]
  - LABELLED DRUG-DRUG INTERACTION MEDICATION ERROR [None]
  - MUSCULAR WEAKNESS [None]
  - MUSCULOSKELETAL STIFFNESS [None]
  - TARDIVE DYSKINESIA [None]
  - WEIGHT DECREASED [None]
